FAERS Safety Report 9055013 (Version 2)
Quarter: 2013Q1

REPORT INFORMATION
  Report Type: Spontaneous
  Country: US (occurrence: US)
  Receive Date: 20130206
  Receipt Date: 20130322
  Transmission Date: 20140127
  Serious: No
  Sender: FDA-Public Use
  Company Number: US-PFIZER INC-2013046732

PATIENT
  Age: 58 Year
  Sex: Female

DRUGS (11)
  1. LYRICA [Suspect]
     Indication: NEURITIS
     Dosage: 50 MG,  NS X 1 WK
     Route: 048
     Dates: start: 20121214
  2. LYRICA [Suspect]
     Indication: NEUROMA
     Dosage: 50 MG, 2X/DAY X 1 WK
     Route: 048
  3. LYRICA [Suspect]
     Dosage: 50 MG, 3X/DAY
     Route: 048
  4. LAMICTAL [Concomitant]
     Dosage: UNK
  5. BENICAR [Concomitant]
     Dosage: UNK
  6. CARVEDILOL [Concomitant]
  7. SYNTHROID [Concomitant]
     Dosage: UNK
  8. PRAVASTATIN [Concomitant]
     Dosage: UNK
  9. VOLTAREN [Concomitant]
     Dosage: UNK
  10. BUPROPION [Concomitant]
     Dosage: UNK
  11. LUNESTA [Concomitant]
     Dosage: UNK

REACTIONS (1)
  - Alopecia [Recovering/Resolving]
